FAERS Safety Report 5119884-7 (Version None)
Quarter: 2006Q3

REPORT INFORMATION
  Report Type: 
  Country: None (occurrence: None)
  Receive Date: 20060929
  Receipt Date: 20060918
  Transmission Date: 20061208
  Serious: Yes (Disabling)
  Sender: FDA-Public Use
  Company Number: M-06-0786

PATIENT
  Age: 67 Year
  Sex: Male
  Weight: 118.8424 kg

DRUGS (5)
  1. PACERONE [Suspect]
     Indication: ATRIAL FIBRILLATION
     Dosage: 400 MG QD PO
     Route: 048
     Dates: start: 20060401, end: 20060728
  2. VYTORIN [Concomitant]
  3. COUMADIN [Concomitant]
  4. CARDIZEM [Concomitant]
  5. AVANDARYL [Concomitant]

REACTIONS (4)
  - BLINDNESS [None]
  - OPTIC ISCHAEMIC NEUROPATHY [None]
  - PAPILLOEDEMA [None]
  - VISUAL FIELD DEFECT [None]
